FAERS Safety Report 16149306 (Version 12)
Quarter: 2025Q1

REPORT INFORMATION
  Report Type: Report from Study
  Country: CA (occurrence: CA)
  Receive Date: 20190402
  Receipt Date: 20250204
  Transmission Date: 20250409
  Serious: Yes (Hospitalization, Other)
  Sender: NOVARTIS
  Company Number: PHHY2018CA062738

PATIENT
  Age: 55 Year
  Sex: Female
  Weight: 106 kg

DRUGS (9)
  1. COSENTYX [Suspect]
     Active Substance: SECUKINUMAB
     Indication: Psoriasis
     Route: 058
     Dates: start: 20171201, end: 20171229
  2. COSENTYX [Suspect]
     Active Substance: SECUKINUMAB
     Route: 058
     Dates: start: 20171229, end: 20181029
  3. CLINDAMYCIN [Suspect]
     Active Substance: CLINDAMYCIN
     Indication: Product used for unknown indication
     Dosage: 300 MG, TID
     Route: 048
     Dates: start: 20181203
  4. CLINDAMYCIN [Suspect]
     Active Substance: CLINDAMYCIN
     Dosage: 300 MG, BID
     Route: 048
     Dates: start: 20181206
  5. BETAMETHASONE DIPROPIONATE\CALCIPOTRIENE MONOHYDRATE [Concomitant]
     Active Substance: BETAMETHASONE DIPROPIONATE\CALCIPOTRIENE MONOHYDRATE
     Indication: Product used for unknown indication
     Route: 065
     Dates: start: 20160324
  6. GUSELKUMABUM [Concomitant]
     Indication: Product used for unknown indication
     Route: 065
     Dates: start: 20190404, end: 20190404
  7. ENSTILAR [Concomitant]
     Active Substance: BETAMETHASONE DIPROPIONATE\CALCIPOTRIENE HYDRATE
     Indication: Product used for unknown indication
     Route: 058
     Dates: start: 20190206
  8. ENSTILAR [Concomitant]
     Active Substance: BETAMETHASONE DIPROPIONATE\CALCIPOTRIENE HYDRATE
     Route: 058
     Dates: start: 20190206
  9. TREMFYA [Concomitant]
     Active Substance: GUSELKUMAB
     Indication: Product used for unknown indication
     Route: 065
     Dates: start: 20190625

REACTIONS (30)
  - Cholelithiasis [Recovered/Resolved]
  - Biliary colic [Recovered/Resolved]
  - Cellulitis [Recovered/Resolved]
  - Pneumothorax [Recovered/Resolved]
  - Escherichia infection [Recovered/Resolved]
  - Pyrexia [Recovered/Resolved]
  - Injection site reaction [Not Recovered/Not Resolved]
  - Eye irritation [Recovered/Resolved]
  - Rhinorrhoea [Recovered/Resolved]
  - Chest pain [Recovered/Resolved]
  - Dizziness [Recovered/Resolved]
  - Fatigue [Recovered/Resolved]
  - Myalgia [Recovered/Resolved]
  - Nasopharyngitis [Recovered/Resolved]
  - Nausea [Recovered/Resolved]
  - Joint stiffness [Recovered/Resolved]
  - Hypercholesterolaemia [Not Recovered/Not Resolved]
  - Bursitis [Not Recovered/Not Resolved]
  - Hepatic steatosis [Not Recovered/Not Resolved]
  - Actinic keratosis [Recovered/Resolved]
  - Dyspnoea [Recovered/Resolved]
  - Chills [Recovered/Resolved]
  - Umbilical hernia [Recovered/Resolved]
  - Atelectasis [Recovered/Resolved]
  - Nasopharyngitis [Recovered/Resolved]
  - Seborrhoeic keratosis [Not Recovered/Not Resolved]
  - Palpitations [Not Recovered/Not Resolved]
  - Arthralgia [Not Recovered/Not Resolved]
  - Heart rate irregular [Not Recovered/Not Resolved]
  - Hyperhidrosis [Not Recovered/Not Resolved]

NARRATIVE: CASE EVENT DATE: 20171201
